FAERS Safety Report 8386608-X (Version None)
Quarter: 2012Q2

REPORT INFORMATION
  Report Type: 
  Country: None (occurrence: None)
  Receive Date: 20120525
  Receipt Date: 20120229
  Transmission Date: 20120825
  Serious: No
  Sender: FDA-Public Use
  Company Number: US-GLAXOSMITHKLINE-A0967940A

PATIENT
  Age: 88 Year
  Sex: Male

DRUGS (11)
  1. TRAVATAN [Concomitant]
  2. METOPROLOL TARTRATE [Concomitant]
  3. AZOPT [Concomitant]
  4. ASPIRIN [Concomitant]
  5. TAMSULOSIN HCL [Concomitant]
  6. VERAMYST [Suspect]
     Indication: RHINORRHOEA
     Dosage: 2SPR PER DAY
     Route: 045
     Dates: start: 20120128
  7. FUROSEMIDE [Concomitant]
  8. ACCUPRIL [Concomitant]
  9. SIMVASTATIN [Concomitant]
  10. LEVOXYL [Concomitant]
  11. WARFARIN SODIUM [Concomitant]

REACTIONS (4)
  - THROAT IRRITATION [None]
  - COUGH [None]
  - INCREASED UPPER AIRWAY SECRETION [None]
  - LACRIMATION INCREASED [None]
